FAERS Safety Report 12415186 (Version 1)
Quarter: 2016Q2

REPORT INFORMATION
  Report Type: Report from Study
  Country: CN (occurrence: CN)
  Receive Date: 20160530
  Receipt Date: 20160530
  Transmission Date: 20160815
  Serious: Yes (Other)
  Sender: FDA-Public Use
  Company Number: CN-ROCHE-1764072

PATIENT

DRUGS (3)
  1. RIBAVIRIN. [Suspect]
     Active Substance: RIBAVIRIN
     Indication: HEPATITIS C
     Dosage: 1000 MG OR 1200 MG/DAY LESS THAN 75 KG OR MORE THAN OR EQUAL TO 75 KG RESPECTIVELY
     Route: 065
  2. PEG-INTERFERON ALFA 2A [Suspect]
     Active Substance: PEGINTERFERON ALFA-2A
     Indication: HEPATITIS C
     Route: 065
  3. SIMEPREVIR [Suspect]
     Active Substance: SIMEPREVIR
     Indication: HEPATITIS C
     Dosage: 100 MG DAILY OR 150 MG DAILY
     Route: 048

REACTIONS (8)
  - Blood bilirubin increased [Unknown]
  - Gastrointestinal disorder [Unknown]
  - Rash [Unknown]
  - Photosensitivity reaction [Unknown]
  - Dyspnoea [Unknown]
  - Anaemia [Unknown]
  - Pruritus [Unknown]
  - Neutropenia [Unknown]
